FAERS Safety Report 5566763-7 (Version None)
Quarter: 2007Q4

REPORT INFORMATION
  Report Type: 
  Country: None (occurrence: None)
  Receive Date: 20071219
  Receipt Date: 20071211
  Transmission Date: 20080405
  Serious: Yes (Other)
  Sender: FDA-Public Use
  Company Number: A0662254A

PATIENT
  Age: 62 Year
  Sex: Female

DRUGS (1)
  1. AVANDIA [Suspect]
     Dosage: 4MG PER DAY
     Route: 048

REACTIONS (8)
  - ARTERIOSCLEROTIC RETINOPATHY [None]
  - CATARACT NUCLEAR [None]
  - DIABETIC RETINAL OEDEMA [None]
  - DIABETIC RETINOPATHY [None]
  - DRY EYE [None]
  - EYE SWELLING [None]
  - RETINAL INFARCTION [None]
  - VISUAL DISTURBANCE [None]
